FAERS Safety Report 9026004 (Version 1)
Quarter: 2013Q1

REPORT INFORMATION
  Report Type: Spontaneous
  Country: US (occurrence: None)
  Receive Date: 20121217
  Receipt Date: 20121217
  Transmission Date: 20140127
  Serious: Yes (Hospitalization, Other)
  Sender: FDA-Public Use
  Company Number: None

PATIENT
  Age: 51 Year
  Sex: Female
  Weight: 126.55 kg

DRUGS (1)
  1. FONDAPARINUX SODIUM (ARIXTRA) [Suspect]
     Indication: THROMBOSIS PROPHYLAXIS
     Dosage: 5MG; ONCE/DAY; 057
     Dates: start: 20121117, end: 20121119

REACTIONS (5)
  - Nausea [None]
  - Retching [None]
  - Vomiting [None]
  - Leukocytosis [None]
  - Cough [None]
